FAERS Safety Report 10533260 (Version 1)
Quarter: 2014Q4

REPORT INFORMATION
  Report Type: Spontaneous
  Country: US (occurrence: None)
  Receive Date: 20141021
  Receipt Date: 20141021
  Transmission Date: 20150529
  Serious: Yes (Death, Life-Threatening, Hospitalization, Disabling)
  Sender: FDA-Public Use
  Company Number: None

PATIENT
  Age: 58 Year
  Sex: Male
  Weight: 105 kg

DRUGS (5)
  1. LISINOPRIL. [Concomitant]
     Active Substance: LISINOPRIL
  2. VERSED [Concomitant]
     Active Substance: MIDAZOLAM HYDROCHLORIDE
  3. ISOVUE 370 [Suspect]
     Active Substance: IOPAMIDOL
     Indication: CATHETERISATION CARDIAC
     Dosage: 52 AS DIRECTED BY MD INTRAVNEOUS
     Route: 042
     Dates: start: 20141003, end: 20141003
  4. FENTANYL. [Concomitant]
     Active Substance: FENTANYL
  5. BYSTOLIC [Concomitant]
     Active Substance: NEBIVOLOL HYDROCHLORIDE

REACTIONS (6)
  - Anaphylactic shock [None]
  - Respiratory arrest [None]
  - Blood pressure decreased [None]
  - Pleural effusion [None]
  - Cardiac arrest [None]
  - Ventricular tachycardia [None]

NARRATIVE: CASE EVENT DATE: 20141003
